FAERS Safety Report 5318022-5 (Version None)
Quarter: 2007Q2

REPORT INFORMATION
  Report Type: 
  Country: None (occurrence: None)
  Receive Date: 20070507
  Receipt Date: 20070424
  Transmission Date: 20071010
  Serious: Yes (Hospitalization)
  Sender: FDA-Public Use
  Company Number: FR-ROCHE-474843

PATIENT
  Age: 41 Year
  Sex: Female
  Weight: 55 kg

DRUGS (4)
  1. PEGASYS [Suspect]
     Indication: HEPATITIS C
     Dosage: FORM: INJECTABLE SOLUTION.
     Route: 058
     Dates: start: 20060220, end: 20061204
  2. COPEGUS [Suspect]
     Indication: HEPATITIS C
     Route: 048
     Dates: start: 20060220, end: 20061128
  3. ARANESP [Concomitant]
     Indication: ANAEMIA
     Dosage: DOSE WAS INCREASED FROM 150 MCG/WEEK TO 500 MCG WEEKLY ON 23 MAY 2006.
     Route: 058
     Dates: start: 20060424
  4. DEROXAT [Concomitant]
     Route: 048
     Dates: start: 20060220

REACTIONS (5)
  - CARDIAC FAILURE [None]
  - GAMMA-GLUTAMYLTRANSFERASE INCREASED [None]
  - HYPOCALCAEMIA [None]
  - MYELOFIBROSIS [None]
  - PANCYTOPENIA [None]
